FAERS Safety Report 7134731-X (Version None)
Quarter: 2010Q4

REPORT INFORMATION
  Report Type: 
  Country: None (occurrence: None)
  Receive Date: 20101130
  Receipt Date: 20101130
  Transmission Date: 20110411
  Serious: Yes (Other)
  Sender: FDA-Public Use
  Company Number: None

PATIENT
  Sex: Female
  Weight: 53.6 kg

DRUGS (3)
  1. LAMOTRIGINE [Suspect]
     Indication: DEPRESSION
     Dosage: 50 MG ONCE DAILY ORAL
     Route: 048
     Dates: start: 20101010, end: 20101102
  2. CYMBALTA [Concomitant]
  3. CONCERTA [Concomitant]

REACTIONS (11)
  - DEPRESSION [None]
  - HEADACHE [None]
  - INFLUENZA LIKE ILLNESS [None]
  - LIP SWELLING [None]
  - MYALGIA [None]
  - PAIN IN EXTREMITY [None]
  - PHOTOPHOBIA [None]
  - PRURITUS [None]
  - RASH ERYTHEMATOUS [None]
  - URINARY INCONTINENCE [None]
  - VAGINAL INFECTION [None]
